FAERS Safety Report 20931603 (Version 1)
Quarter: 2022Q2

REPORT INFORMATION
  Report Type: Spontaneous
  Country: US (occurrence: None)
  Receive Date: 20220607
  Receipt Date: 20220607
  Transmission Date: 20220720
  Serious: Yes (unspecified)
  Sender: FDA-Public Use
  Company Number: None

PATIENT
  Age: 61 Year
  Sex: Male
  Weight: 84.5 kg

DRUGS (2)
  1. ENTYVIO [Suspect]
     Active Substance: VEDOLIZUMAB
     Indication: Crohn^s disease
     Dosage: FREQUENCY : ONCE;?
     Route: 041
     Dates: start: 20220603, end: 20220603
  2. Diphenhydramine 25 mg IVP [Concomitant]
     Dates: start: 20220603, end: 20220603

REACTIONS (4)
  - Flushing [None]
  - Feeling hot [None]
  - Blood pressure increased [None]
  - Injection related reaction [None]

NARRATIVE: CASE EVENT DATE: 20220603
